FAERS Safety Report 8167323-4 (Version None)
Quarter: 2012Q1

REPORT INFORMATION
  Report Type: 
  Country: None (occurrence: None)
  Receive Date: 20120227
  Receipt Date: 20120223
  Transmission Date: 20120608
  Serious: Yes (Other)
  Sender: FDA-Public Use
  Company Number: US-PFIZER INC-2012048858

PATIENT
  Sex: Female

DRUGS (2)
  1. GEODON [Suspect]
     Dosage: UNK
  2. GEODON [Suspect]
     Dosage: 80 MG, 2X/DAY

REACTIONS (6)
  - INCREASED APPETITE [None]
  - VISION BLURRED [None]
  - GLAUCOMA [None]
  - VISUAL ACUITY REDUCED [None]
  - EYE DISORDER [None]
  - ALOPECIA [None]
